FAERS Safety Report 11759950 (Version 1)
Quarter: 2015Q4

REPORT INFORMATION
  Report Type: Spontaneous
  Country: US (occurrence: US)
  Receive Date: 20151120
  Receipt Date: 20151120
  Transmission Date: 20160304
  Serious: No
  Sender: FDA-Public Use
  Company Number: US-JNJFOC-20151016026

PATIENT
  Sex: Female
  Weight: 81.65 kg

DRUGS (2)
  1. MENS ROGAINE EXTRA STRENGTH [Suspect]
     Active Substance: MINOXIDIL
     Route: 061
  2. MENS ROGAINE EXTRA STRENGTH [Suspect]
     Active Substance: MINOXIDIL
     Indication: ALOPECIA
     Dosage: UP TO LINE ON THE DROPPER, MAYBE EVERY OTHER DAY
     Route: 061

REACTIONS (3)
  - Wrong patient received medication [Unknown]
  - Product quality issue [Unknown]
  - Product container issue [Unknown]
